FAERS Safety Report 5937311-4 (Version None)
Quarter: 2008Q4

REPORT INFORMATION
  Report Type: 
  Country: None (occurrence: None)
  Receive Date: 20081031
  Receipt Date: 20081028
  Transmission Date: 20090506
  Serious: Yes (Hospitalization)
  Sender: FDA-Public Use
  Company Number: JP-AVENTIS-200813099JP

PATIENT
  Age: 60 Year
  Sex: Female
  Weight: 42 kg

DRUGS (10)
  1. ARAVA [Suspect]
     Indication: RHEUMATOID ARTHRITIS
     Route: 048
     Dates: start: 20040114, end: 20081003
  2. GOSHAJINKIGAN [Suspect]
     Indication: DIZZINESS
     Route: 048
     Dates: start: 20080822, end: 20080922
  3. GOSHAJINKIGAN [Suspect]
     Indication: TINNITUS
     Route: 048
     Dates: start: 20080822, end: 20080922
  4. HERBAL PREPARATION [Suspect]
     Indication: GASTROINTESTINAL DISORDER
     Route: 048
     Dates: start: 20080912, end: 20080922
  5. RIMATIL [Concomitant]
     Indication: RHEUMATOID ARTHRITIS
     Route: 048
     Dates: start: 20000101, end: 20081003
  6. METHYCOBAL                         /00056201/ [Concomitant]
     Indication: DIZZINESS
     Route: 048
  7. RABEPRAZOLE SODIUM [Concomitant]
     Route: 048
  8. GANATON [Concomitant]
     Route: 048
  9. LIPITOR [Concomitant]
     Route: 048
  10. OPALMON [Concomitant]
     Route: 048

REACTIONS (1)
  - LIVER DISORDER [None]
